FAERS Safety Report 7432252-8 (Version None)
Quarter: 2011Q2

REPORT INFORMATION
  Report Type: 
  Country: None (occurrence: None)
  Receive Date: 20110422
  Receipt Date: 20110418
  Transmission Date: 20111010
  Serious: Yes (Other)
  Sender: FDA-Public Use
  Company Number: US-TEVA-277092USA

PATIENT
  Age: 73 Year
  Sex: Male

DRUGS (7)
  1. AZITHROMYCIN [Interacting]
     Dosage: 250 MILLIGRAM;
  2. SIMVASTATIN [Interacting]
     Dosage: 80 MILLIGRAM;
  3. BUMETANIDE [Concomitant]
  4. AZITHROMYCIN [Suspect]
     Indication: BRONCHITIS
  5. LABETALOL [Concomitant]
  6. ALLOPURINOL [Concomitant]
  7. PREDNISONE [Concomitant]

REACTIONS (2)
  - DRUG INTERACTION [None]
  - RHABDOMYOLYSIS [None]
